FAERS Safety Report 4300765-3 (Version None)
Quarter: 2004Q1

REPORT INFORMATION
  Report Type: 
  Country: None (occurrence: None)
  Receive Date: 20040218
  Receipt Date: 20040203
  Transmission Date: 20041129
  Serious: Yes (Other)
  Sender: FDA-Public Use
  Company Number: 2004-BP-00481BP

PATIENT
  Age: 69 Year
  Sex: Female

DRUGS (11)
  1. MICARDIS [Suspect]
     Indication: CEREBROVASCULAR ACCIDENT
     Route: 048
     Dates: start: 20030701, end: 20030701
  2. MICARDIS [Suspect]
     Indication: MYOCARDIAL INFARCTION
     Route: 048
     Dates: start: 20030701, end: 20030701
  3. MICARDIS [Suspect]
     Indication: PROPHYLAXIS
     Route: 048
     Dates: start: 20030701, end: 20030701
  4. RAMIPRIL [Suspect]
     Indication: CEREBROVASCULAR ACCIDENT
     Route: 048
     Dates: start: 20030701
  5. RAMIPRIL [Suspect]
     Indication: MYOCARDIAL INFARCTION
     Route: 048
     Dates: start: 20030701
  6. RAMIPRIL [Suspect]
     Indication: PROPHYLAXIS
     Route: 048
     Dates: start: 20030701
  7. ASS (NR) [Concomitant]
     Indication: PROPHYLAXIS
  8. INSULIN (INSULIN) (NR) [Concomitant]
  9. L-THYROXINE (NR) [Concomitant]
  10. FENOFIBRAT (NR) [Concomitant]
  11. PLIMEPOID (NR) [Concomitant]

REACTIONS (3)
  - FALL [None]
  - LOSS OF CONSCIOUSNESS [None]
  - SYNCOPE [None]
